FAERS Safety Report 6607705-2 (Version None)
Quarter: 2010Q1

REPORT INFORMATION
  Report Type: 
  Country: None (occurrence: None)
  Receive Date: 20100301
  Receipt Date: 20100222
  Transmission Date: 20100710
  Serious: Yes (Other)
  Sender: FDA-Public Use
  Company Number: US-JNJFOC-20091004386

PATIENT
  Sex: Female

DRUGS (4)
  1. REMICADE [Suspect]
     Indication: COLITIS ULCERATIVE
     Route: 042
  2. REMICADE [Suspect]
     Route: 042
  3. APRI [Concomitant]
     Indication: COLITIS ULCERATIVE
  4. COLAZAL [Concomitant]
     Indication: COLITIS ULCERATIVE

REACTIONS (2)
  - ARTHRITIS [None]
  - TRISMUS [None]
